FAERS Safety Report 10943820 (Version 1)
Quarter: 2015Q1

REPORT INFORMATION
  Report Type: Spontaneous
  Country: US (occurrence: None)
  Receive Date: 20150212
  Receipt Date: 20150212
  Transmission Date: 20150721
  Serious: No
  Sender: FDA-Public Use
  Company Number: TPA2011A08030

PATIENT
  Age: 85 Year
  Sex: Female
  Weight: 70.31 kg

DRUGS (5)
  1. ULORIC [Suspect]
     Active Substance: FEBUXOSTAT
     Indication: BLOOD URIC ACID INCREASED
     Route: 048
     Dates: start: 20111121
  2. ULORIC [Suspect]
     Active Substance: FEBUXOSTAT
     Indication: GOUT
     Route: 048
     Dates: start: 20111121
  3. LOVASTATIN. [Concomitant]
     Active Substance: LOVASTATIN
  4. ENALAPRIL [Concomitant]
     Active Substance: ENALAPRIL
  5. ATENOLOL. [Concomitant]
     Active Substance: ATENOLOL

REACTIONS (5)
  - Regurgitation [None]
  - Headache [None]
  - Dyspepsia [None]
  - Fatigue [None]
  - Gout [None]

NARRATIVE: CASE EVENT DATE: 201111
